FAERS Safety Report 8802157 (Version 3)
Quarter: 2013Q3

REPORT INFORMATION
  Report Type: Report from Study
  Country: US (occurrence: US)
  Receive Date: 20120921
  Receipt Date: 20130725
  Transmission Date: 20140515
  Serious: Yes (Other)
  Sender: FDA-Public Use
  Company Number: PHEH2012US018197

PATIENT
  Age: 59 Year
  Sex: Female

DRUGS (12)
  1. TASIGNA [Suspect]
     Dosage: 1 DF, BID
     Route: 048
  2. ZYRTEC [Concomitant]
     Dosage: 5 MG
  3. BENADRYL [Concomitant]
     Dosage: 25 MG
  4. RHINOCORT AQUA [Concomitant]
  5. TUMS [Concomitant]
     Dosage: 500 MG
  6. NASALCROM [Concomitant]
  7. SYNTHROID [Concomitant]
     Dosage: 25 UG
  8. COMBIVENT [Concomitant]
  9. SCALPICIN [Concomitant]
     Dosage: 1 %
  10. CORTISONE [Concomitant]
     Dosage: 1 %
  11. VITAMIN D3 [Concomitant]
  12. ZEGERID [Concomitant]
     Dosage: 20-1100 UNK, UNK

REACTIONS (8)
  - Ocular hyperaemia [Unknown]
  - Migraine [Unknown]
  - Piloerection [Unknown]
  - Extrasystoles [Unknown]
  - Rash [Unknown]
  - Pruritus [Unknown]
  - Asthenia [Unknown]
  - Dizziness [Unknown]
